FAERS Safety Report 12328433 (Version 1)
Quarter: 2016Q2

REPORT INFORMATION
  Report Type: Spontaneous
  Country: US (occurrence: US)
  Receive Date: 20160503
  Receipt Date: 20160503
  Transmission Date: 20160815
  Serious: No
  Sender: FDA-Public Use
  Company Number: US-BEH-2014046664

PATIENT
  Age: 61 Year
  Sex: Female
  Weight: 81 kg

DRUGS (23)
  1. XOPENEX [Concomitant]
     Active Substance: LEVALBUTEROL HYDROCHLORIDE
     Dosage: 0.31MG/3 ML SOLUTION
  2. MACROBID [Concomitant]
     Active Substance: NITROFURANTOIN\NITROFURANTOIN MONOHYDRATE
  3. NASONEX [Concomitant]
     Active Substance: MOMETASONE FUROATE
  4. COMPLETE MULTIVITAMIN [Concomitant]
     Active Substance: VITAMINS
  5. EPI-PEN AUTOINJECTOR [Concomitant]
  6. CALCIUM + VITAMIN D [Concomitant]
     Active Substance: CALCIUM\VITAMIN D
  7. LEVOTHYROXINE. [Concomitant]
     Active Substance: LEVOTHYROXINE
  8. ACETAMINOPHEN. [Concomitant]
     Active Substance: ACETAMINOPHEN
  9. PREDNISONE. [Concomitant]
     Active Substance: PREDNISONE
  10. VERAPAMIL [Concomitant]
     Active Substance: VERAPAMIL HYDROCHLORIDE
  11. VAGISIL ANTI ITCH ORIGINAL STRENGTH [Concomitant]
     Active Substance: BENZOCAINE\RESORCINOL
  12. HIZENTRA [Suspect]
     Active Substance: HUMAN IMMUNOGLOBULIN G
     Route: 065
     Dates: start: 20141110
  13. COREG [Concomitant]
     Active Substance: CARVEDILOL
  14. EFFEXOR XR [Concomitant]
     Active Substance: VENLAFAXINE HYDROCHLORIDE
  15. ANASTROZOLE. [Concomitant]
     Active Substance: ANASTROZOLE
  16. DIPHENHYDRAMINE. [Concomitant]
     Active Substance: DIPHENHYDRAMINE
  17. LIDOCAINE/PRILOCAINE [Concomitant]
  18. ASTELIN [Concomitant]
     Active Substance: AZELASTINE HYDROCHLORIDE
  19. QVAR [Concomitant]
     Active Substance: BECLOMETHASONE DIPROPIONATE
  20. HIZENTRA [Suspect]
     Active Substance: HUMAN IMMUNOGLOBULIN G
     Indication: IMMUNODEFICIENCY COMMON VARIABLE
     Route: 065
  21. SINGULAIR [Concomitant]
     Active Substance: MONTELUKAST SODIUM
  22. PEPCID [Concomitant]
     Active Substance: FAMOTIDINE
  23. SIMVASTATIN. [Concomitant]
     Active Substance: SIMVASTATIN

REACTIONS (4)
  - Fatigue [Recovered/Resolved]
  - Injection site erythema [Recovered/Resolved]
  - Injection site vesicles [Recovered/Resolved]
  - Administration site swelling [Recovered/Resolved]

NARRATIVE: CASE EVENT DATE: 20141110
